FAERS Safety Report 9027806 (Version 5)
Quarter: 2013Q1

REPORT INFORMATION
  Report Type: Spontaneous
  Country: US (occurrence: US)
  Receive Date: 20130124
  Receipt Date: 20130222
  Transmission Date: 20140127
  Serious: Yes (Other)
  Sender: FDA-Public Use
  Company Number: US-JNJFOC-20130102771

PATIENT
  Age: 48 None
  Sex: Male
  Weight: 106.6 kg

DRUGS (3)
  1. STELARA [Suspect]
     Indication: PSORIASIS
     Route: 058
     Dates: start: 2012
  2. AMLODIPINE [Concomitant]
     Indication: BLOOD PRESSURE
     Route: 048
  3. ZYRTEC [Concomitant]
     Indication: SECRETION DISCHARGE
     Route: 065

REACTIONS (3)
  - Diabetes mellitus [Not Recovered/Not Resolved]
  - Bacterial infection [Not Recovered/Not Resolved]
  - Subcutaneous abscess [Not Recovered/Not Resolved]
